FAERS Safety Report 9726176 (Version 2)
Quarter: 2014Q1

REPORT INFORMATION
  Report Type: Spontaneous
  Country: DE (occurrence: DE)
  Receive Date: 20131203
  Receipt Date: 20140108
  Transmission Date: 20141002
  Serious: Yes (Hospitalization, Other)
  Sender: FDA-Public Use
  Company Number: PHHY2013DE138275

PATIENT
  Age: 37 Year
  Sex: Male

DRUGS (4)
  1. GILENYA [Suspect]
     Indication: MULTIPLE SCLEROSIS
     Dosage: 0.5 MG, QD
     Route: 048
     Dates: start: 201303, end: 201312
  2. FUROSEMID RATIOPHARM//FUROSEMIDE [Suspect]
     Indication: NEPHROLOGICAL EXAMINATION
     Dates: start: 20131122, end: 20131122
  3. TERAZOSIN [Concomitant]
     Indication: BLADDER DISORDER
     Dates: start: 2013
  4. ANTI ALLERGIC AGENTS [Concomitant]
     Indication: HYPERSENSITIVITY
     Dates: start: 20131122, end: 20131122

REACTIONS (8)
  - Cystitis [Unknown]
  - Haematuria [Unknown]
  - Renal impairment [Unknown]
  - Hypersensitivity [Recovered/Resolved]
  - Pruritus [Recovered/Resolved]
  - Erythema [Recovered/Resolved]
  - Lymphadenopathy [Recovered/Resolved]
  - Pain in extremity [Not Recovered/Not Resolved]
